FAERS Safety Report 16865762 (Version 3)
Quarter: 2019Q4

REPORT INFORMATION
  Report Type: Report from Study
  Country: IT (occurrence: IT)
  Receive Date: 20190930
  Receipt Date: 20191030
  Transmission Date: 20200122
  Serious: Yes (Death)
  Sender: FDA-Public Use
  Company Number: IT-ROCHE-2413437

PATIENT
  Age: 54 Year
  Sex: Male

DRUGS (6)
  1. PREDNISONE. [Suspect]
     Active Substance: PREDNISONE
     Indication: SPLENIC MARGINAL ZONE LYMPHOMA
     Route: 065
  2. CYCLOPHOSPHAMIDE. [Suspect]
     Active Substance: CYCLOPHOSPHAMIDE
     Indication: SPLENIC MARGINAL ZONE LYMPHOMA
     Route: 065
  3. RITUXIMAB. [Suspect]
     Active Substance: RITUXIMAB
     Indication: SPLENIC MARGINAL ZONE LYMPHOMA
     Route: 065
  4. VINCRISTINE [Suspect]
     Active Substance: VINCRISTINE
     Indication: SPLENIC MARGINAL ZONE LYMPHOMA
     Route: 065
  5. DOXORUBICIN [Suspect]
     Active Substance: DOXORUBICIN
     Indication: SPLENIC MARGINAL ZONE LYMPHOMA
     Route: 065
  6. BENDAMUSTINE [Suspect]
     Active Substance: BENDAMUSTINE
     Indication: SPLENIC MARGINAL ZONE LYMPHOMA
     Dosage: UNK, CYCLIC
     Route: 042

REACTIONS (1)
  - Splenic marginal zone lymphoma [Fatal]
